FAERS Safety Report 18219090 (Version 4)
Quarter: 2020Q4

REPORT INFORMATION
  Report Type: Spontaneous
  Country: AR (occurrence: AR)
  Receive Date: 20200901
  Receipt Date: 20201124
  Transmission Date: 20210113
  Serious: Yes (Other)
  Sender: FDA-Public Use
  Company Number: AR-MYLANLABS-2020M1073937

PATIENT
  Age: 30 Year
  Sex: Male

DRUGS (4)
  1. LAPENAX [Suspect]
     Active Substance: CLOZAPINE
     Indication: PRODUCT USED FOR UNKNOWN INDICATION
     Dosage: 150 MILLIGRAM, QD
     Dates: start: 20180401
  2. BIPERIDEN [Concomitant]
     Active Substance: BIPERIDEN
     Dosage: 4 MILLIGRAM, QD
  3. MAGNESIUM VALPROATE [Concomitant]
     Active Substance: VALPROATE MAGNESIUM
     Dosage: 1600 MILLIGRAM, QD
  4. LORAZEPAM. [Concomitant]
     Active Substance: LORAZEPAM
     Dosage: 2.5 MILLIGRAM, QD

REACTIONS (4)
  - Neutropenia [Recovered/Resolved]
  - Intellectual disability [Unknown]
  - Psychotic disorder [Unknown]
  - Deafness [Unknown]

NARRATIVE: CASE EVENT DATE: 20200821
